FAERS Safety Report 11128190 (Version 1)
Quarter: 2015Q2

REPORT INFORMATION
  Report Type: Spontaneous
  Country: US (occurrence: US)
  Receive Date: 20150521
  Receipt Date: 20150521
  Transmission Date: 20150821
  Serious: Yes (Other)
  Sender: FDA-Public Use
  Company Number: US-UCBSA-2015016072

PATIENT
  Age: 34 Year
  Sex: Female
  Weight: 53.1 kg

DRUGS (16)
  1. FOLIC ACID. [Concomitant]
     Active Substance: FOLIC ACID
     Indication: PRODUCT USED FOR UNKNOWN INDICATION
     Dosage: 400 ?G, ONCE DAILY (QD)
     Route: 048
     Dates: start: 20140625, end: 20141002
  2. DIPHTHERIA AND TETANUS TOXOIDS AND PERTUSSIS VACCINE ADSORBED NOS [Concomitant]
     Active Substance: DIPHTHERIA AND TETANUS TOXOIDS AND PERTUSSIS VACCINE
     Indication: PRODUCT USED FOR UNKNOWN INDICATION
     Dosage: 1 DF, ONE TIME DOSE
     Dates: start: 20150215, end: 20150215
  3. PRENATAL VITAMINS [Concomitant]
     Active Substance: VITAMINS
     Indication: PRODUCT USED FOR UNKNOWN INDICATION
     Dosage: 1 DF, ONCE DAILY (QD)
     Route: 048
     Dates: start: 20140625, end: 20150402
  4. FISH OIL [Concomitant]
     Active Substance: FISH OIL
     Indication: PRODUCT USED FOR UNKNOWN INDICATION
     Dosage: 2800 MG, ONCE DAILY (QD)
     Route: 048
     Dates: start: 20141201, end: 20150402
  5. FOLIC ACID. [Concomitant]
     Active Substance: FOLIC ACID
     Dosage: 200 ?G, ONCE DAILY (QD)
     Route: 048
     Dates: start: 20141003, end: 20150402
  6. PROBIOTICS NOS [Concomitant]
     Active Substance: PROBIOTICS NOS
     Indication: PRODUCT USED FOR UNKNOWN INDICATION
     Dosage: 2 DF, ONCE DAILY (QD)
     Route: 048
     Dates: start: 20140625, end: 20150402
  7. PREDNISONE. [Concomitant]
     Active Substance: PREDNISONE
     Indication: CROHN^S DISEASE
     Dosage: 40 MG, ONCE DAILY (QD)
     Route: 048
     Dates: start: 20141128, end: 20141211
  8. PREDNISONE. [Concomitant]
     Active Substance: PREDNISONE
     Dosage: 20 MG, ONCE DAILY (QD)
     Route: 048
     Dates: start: 20150102, end: 20150201
  9. CIMZIA [Suspect]
     Active Substance: CERTOLIZUMAB PEGOL
     Indication: CROHN^S DISEASE
     Dosage: DOSE: 400 MG
     Dates: start: 20141211, end: 20150108
  10. CIMZIA [Suspect]
     Active Substance: CERTOLIZUMAB PEGOL
     Dosage: 400 MG, MONTHLY (QM)
     Dates: start: 20150205, end: 20150216
  11. CIMZIA [Suspect]
     Active Substance: CERTOLIZUMAB PEGOL
     Dosage: DOSE: 200 MG
     Dates: start: 20150122, end: 20150122
  12. PREDNISONE. [Concomitant]
     Active Substance: PREDNISONE
     Dosage: 10 MG, ONCE DAILY (QD)
     Route: 048
     Dates: start: 20150202, end: 20150315
  13. LIALDA [Concomitant]
     Active Substance: MESALAMINE
     Indication: CROHN^S DISEASE
     Dosage: 3.6 G, ONCE DAILY (QD)
     Route: 048
     Dates: start: 20141114, end: 20141128
  14. CALCIUM [Concomitant]
     Active Substance: CALCIUM
     Indication: PRODUCT USED FOR UNKNOWN INDICATION
     Dosage: 1000 MG, ONCE DAILY (QD)
     Route: 048
     Dates: start: 20140625, end: 20150402
  15. IRON [Concomitant]
     Active Substance: IRON
     Indication: PRODUCT USED FOR UNKNOWN INDICATION
     Dosage: 325 MG, EVERY 3.5 WEEKS
     Route: 048
     Dates: start: 20141208, end: 20141229
  16. PREDNISONE. [Concomitant]
     Active Substance: PREDNISONE
     Dosage: 30 MG, ONCE DAILY (QD)
     Route: 048
     Dates: start: 20141212, end: 20150101

REACTIONS (2)
  - Latent tuberculosis [Unknown]
  - Exposure during pregnancy [Unknown]

NARRATIVE: CASE EVENT DATE: 20141211
